FAERS Safety Report 21371763 (Version 1)
Quarter: 2022Q3

REPORT INFORMATION
  Report Type: Spontaneous
  Country: US (occurrence: None)
  Receive Date: 20220922
  Receipt Date: 20220922
  Transmission Date: 20221026
  Serious: No
  Sender: FDA-Public Use
  Company Number: None

PATIENT
  Age: 89 Year
  Sex: Female
  Weight: 75.61 kg

DRUGS (14)
  1. CAPECITABINE [Suspect]
     Active Substance: CAPECITABINE
     Indication: Breast cancer female
     Dosage: FREQUENCY : TWICE A DAY;?
     Route: 048
  2. ADVANCED EYE HEALTH [Concomitant]
  3. ARICEPT [Concomitant]
     Active Substance: DONEPEZIL HYDROCHLORIDE
  4. ASPIRIN [Concomitant]
     Active Substance: ASPIRIN
  5. ATORVASTATIN [Concomitant]
  6. CALCIUM [Concomitant]
     Active Substance: CALCIUM
  7. FISH OIL [Concomitant]
  8. FULVESTRANT [Concomitant]
  9. HYDROCHLOROTHIAZIDE [Concomitant]
  10. LOSARTAN [Concomitant]
  11. MULTIPLEVITAMIN [Concomitant]
  12. OMEPRAZOLE [Concomitant]
  13. VITAMIN B12 [Concomitant]
  14. XGEVA [Concomitant]

REACTIONS (1)
  - Hospice care [None]
